FAERS Safety Report 4423297-0 (Version None)
Quarter: 2004Q3

REPORT INFORMATION
  Report Type: 
  Country: None (occurrence: None)
  Receive Date: 20040811
  Receipt Date: 20040803
  Transmission Date: 20050211
  Serious: Yes (Disabling)
  Sender: FDA-Public Use
  Company Number: ESPFI-S-20030008

PATIENT
  Age: 73 Year
  Sex: Female

DRUGS (6)
  1. NAVELBINE [Suspect]
     Indication: LUNG ADENOCARCINOMA
     Route: 042
     Dates: start: 20030926
  2. NOLOTIL [Concomitant]
  3. PRIMPERAN INJ [Concomitant]
  4. SEVREDOL [Concomitant]
  5. DUPHALAC [Concomitant]
  6. MORPHINE SULFATE [Concomitant]

REACTIONS (8)
  - BURNING SENSATION [None]
  - ERYTHEMA [None]
  - INJECTION SITE ERYTHEMA [None]
  - INJECTION SITE PRURITUS [None]
  - PAIN [None]
  - PRURITUS [None]
  - SKIN LESION [None]
  - SKIN REACTION [None]
